FAERS Safety Report 6499003-5 (Version None)
Quarter: 2009Q4

REPORT INFORMATION
  Report Type: 
  Country: None (occurrence: None)
  Receive Date: 20091215
  Receipt Date: 20091201
  Transmission Date: 20100525
  Serious: Yes (Hospitalization, Other)
  Sender: FDA-Public Use
  Company Number: SI-PURDUE-USA-2009-0041320

PATIENT
  Age: 4 Year
  Sex: Female

DRUGS (1)
  1. TRAMADOL HCL [Suspect]
     Indication: DRUG USE FOR UNKNOWN INDICATION

REACTIONS (9)
  - ACCIDENTAL DRUG INTAKE BY CHILD [None]
  - CYANOSIS [None]
  - GRAND MAL CONVULSION [None]
  - HALLUCINATION [None]
  - OPISTHOTONUS [None]
  - RESPIRATION ABNORMAL [None]
  - RESPIRATORY DEPRESSION [None]
  - SOMNOLENCE [None]
  - TREMOR [None]
